FAERS Safety Report 24738184 (Version 1)
Quarter: 2024Q4

REPORT INFORMATION
  Report Type: Spontaneous
  Country: NL (occurrence: NL)
  Receive Date: 20241216
  Receipt Date: 20241216
  Transmission Date: 20250115
  Serious: Yes (Other)
  Sender: JUBILANT
  Company Number: NL-JUBILANT CADISTA PHARMACEUTICALS-2024JUB00099

PATIENT
  Age: 12 Year
  Sex: Female

DRUGS (6)
  1. MYCOPHENOLATE MOFETIL [Suspect]
     Active Substance: MYCOPHENOLATE MOFETIL
     Indication: Immunosuppression
  2. FLUDARABINE [Concomitant]
     Active Substance: FLUDARABINE PHOSPHATE
     Dosage: 30 MG/M
  3. THIOTEPA [Concomitant]
     Active Substance: THIOTEPA
     Dosage: 10 MG/KG
  4. TREOSULFAN [Concomitant]
     Active Substance: TREOSULFAN
     Dosage: 14 MG/M2
  5. METHOTREXATE [Concomitant]
     Active Substance: METHOTREXATE
  6. CYCLOSPORINE [Concomitant]
     Active Substance: CYCLOSPORINE

REACTIONS (2)
  - Posterior reversible encephalopathy syndrome [Recovering/Resolving]
  - Haemophagocytic lymphohistiocytosis [Recovering/Resolving]
